FAERS Safety Report 8331713-7 (Version None)
Quarter: 2012Q2

REPORT INFORMATION
  Report Type: 
  Country: None (occurrence: None)
  Receive Date: 20120502
  Receipt Date: 20111103
  Transmission Date: 20120825
  Serious: No
  Sender: FDA-Public Use
  Company Number: US-ASTRAZENECA-2011SE58075

PATIENT
  Age: 64 Year
  Sex: Female
  Weight: 74.8 kg

DRUGS (6)
  1. ENTOCORT EC [Suspect]
     Route: 048
  2. ENTOCORT EC [Suspect]
     Route: 048
     Dates: start: 20110609
  3. ENTOCORT EC [Suspect]
     Route: 048
     Dates: start: 20110815
  4. ENTOCORT EC [Suspect]
     Indication: COLITIS MICROSCOPIC
     Route: 048
     Dates: start: 20090901
  5. ENTOCORT EC [Suspect]
     Route: 048
     Dates: start: 20110712
  6. MULTI-VITAMINS [Concomitant]

REACTIONS (7)
  - ABDOMINAL DISCOMFORT [None]
  - SLEEP DISORDER DUE TO A GENERAL MEDICAL CONDITION [None]
  - OFF LABEL USE [None]
  - PAINFUL DEFAECATION [None]
  - DIARRHOEA [None]
  - DISCOMFORT [None]
  - ABDOMINAL DISTENSION [None]
